FAERS Safety Report 9324677 (Version 1)
Quarter: 2013Q2

REPORT INFORMATION
  Report Type: Spontaneous
  Country: GB (occurrence: GB)
  Receive Date: 20130603
  Receipt Date: 20130603
  Transmission Date: 20140414
  Serious: Yes (Other)
  Sender: FDA-Public Use
  Company Number: GB-GLAXOSMITHKLINE-B0889302A

PATIENT
  Age: 65 Year
  Sex: Female

DRUGS (3)
  1. SERETIDE [Suspect]
     Indication: PRODUCT USED FOR UNKNOWN INDICATION
     Dosage: 2PUFF TWICE PER DAY
     Route: 055
     Dates: start: 20130425
  2. BLOOD PRESSURE MEDICATION [Concomitant]
  3. ANTI-EPILEPTIC DRUG [Concomitant]
     Indication: EPILEPSY

REACTIONS (1)
  - Overdose [Recovered/Resolved]
